FAERS Safety Report 22322954 (Version 1)
Quarter: 2023Q2

REPORT INFORMATION
  Report Type: Spontaneous
  Country: US (occurrence: None)
  Receive Date: 20230516
  Receipt Date: 20230516
  Transmission Date: 20230721
  Serious: No
  Sender: FDA-Public Use
  Company Number: US-ARIS GLOBAL-AXS202210-000057

PATIENT
  Sex: Female

DRUGS (1)
  1. SUNOSI [Suspect]
     Active Substance: SOLRIAMFETOL
     Indication: Product used for unknown indication
     Dosage: SHE TAKES 75MG AND SOMETIMES THE 150MG DURING THE WEEK EXCEPT ON SATURDAYS AND SUNDAYS.
     Route: 048

REACTIONS (3)
  - Cough [Unknown]
  - Throat clearing [Unknown]
  - Inappropriate schedule of product administration [Unknown]
